FAERS Safety Report 4925268-4 (Version None)
Quarter: 2006Q1

REPORT INFORMATION
  Report Type: 
  Country: None (occurrence: None)
  Receive Date: 20060228
  Receipt Date: 20060221
  Transmission Date: 20060701
  Serious: Yes (Other)
  Sender: FDA-Public Use
  Company Number: ES-JNJFOC-20051203791

PATIENT
  Sex: Male

DRUGS (3)
  1. REMICADE [Suspect]
     Indication: CROHN'S DISEASE
     Dosage: 5MG/KG - 10MG/KG
     Route: 042
  2. STEROIDS [Concomitant]
     Route: 065
  3. METHOTREXATE [Concomitant]
     Route: 065

REACTIONS (2)
  - OPPORTUNISTIC INFECTION [None]
  - TUBERCULOSIS [None]
